FAERS Safety Report 11826628 (Version 1)
Quarter: 2015Q4

REPORT INFORMATION
  Report Type: Spontaneous
  Country: CA (occurrence: CA)
  Receive Date: 20151211
  Receipt Date: 20151211
  Transmission Date: 20160305
  Serious: Yes (Hospitalization, Other)
  Sender: FDA-Public Use
  Company Number: CA-TEVA-617211ACC

PATIENT
  Sex: Female

DRUGS (1)
  1. LAMOTRIGINE. [Suspect]
     Active Substance: LAMOTRIGINE
     Indication: DEPRESSION
     Dosage: 50 MILLIGRAM DAILY;
     Route: 065

REACTIONS (9)
  - Balance disorder [Unknown]
  - Fatigue [Unknown]
  - Decreased appetite [Unknown]
  - Suicidal ideation [Unknown]
  - Daydreaming [Unknown]
  - Dry mouth [Unknown]
  - Insomnia [Unknown]
  - Nausea [Unknown]
  - Feeling abnormal [Unknown]
